FAERS Safety Report 5009863-2 (Version None)
Quarter: 2006Q2

REPORT INFORMATION
  Report Type: 
  Country: None (occurrence: None)
  Receive Date: 20060524
  Receipt Date: 20050218
  Transmission Date: 20061013
  Serious: Yes (Other)
  Sender: FDA-Public Use
  Company Number: PHBS2005GR02486

PATIENT
  Age: 47 Year
  Sex: Male

DRUGS (1)
  1. ZOMETA [Suspect]
     Indication: NEUROENDOCRINE CARCINOMA
     Dosage: UNK, UNK
     Route: 042

REACTIONS (2)
  - BACTEROIDES INFECTION [None]
  - OSTEONECROSIS [None]
